FAERS Safety Report 14512391 (Version 1)
Quarter: 2018Q1

REPORT INFORMATION
  Report Type: Spontaneous
  Country: US (occurrence: US)
  Receive Date: 20180209
  Receipt Date: 20180209
  Transmission Date: 20180509
  Serious: No
  Sender: FDA-Public Use
  Company Number: US-ALLERGAN-1718734US

PATIENT

DRUGS (1)
  1. RESTASIS [Suspect]
     Active Substance: CYCLOSPORINE
     Indication: DRY EYE
     Dosage: 2 GTT, UNK
     Route: 047

REACTIONS (4)
  - Nausea [Recovering/Resolving]
  - Movement disorder [Not Recovered/Not Resolved]
  - Dizziness [Recovering/Resolving]
  - Vertigo [Recovering/Resolving]
